FAERS Safety Report 9320825 (Version 1)
Quarter: 2013Q2

REPORT INFORMATION
  Report Type: Spontaneous
  Country: US (occurrence: None)
  Receive Date: 20130529
  Receipt Date: 20130529
  Transmission Date: 20140414
  Serious: No
  Sender: FDA-Public Use
  Company Number: None

PATIENT
  Age: 33 Year
  Sex: Male
  Weight: 80 kg

DRUGS (1)
  1. BUPROPION [Suspect]
     Dosage: 150 MG BID PO
     Route: 048
     Dates: start: 20130210, end: 20130322

REACTIONS (3)
  - Anxiety [None]
  - Insomnia [None]
  - Suicidal ideation [None]
